FAERS Safety Report 9948430 (Version 2)
Quarter: 2014Q1

REPORT INFORMATION
  Report Type: Report from Study
  Country: US (occurrence: US)
  Receive Date: 20140303
  Receipt Date: 20140303
  Transmission Date: 20141002
  Serious: No
  Sender: FDA-Public Use
  Company Number: US-ABBVIE-13P-163-1043306-00

PATIENT
  Age: 21 Year
  Sex: Female
  Weight: 56.75 kg

DRUGS (7)
  1. HUMIRA [Suspect]
     Indication: RHEUMATOID ARTHRITIS
     Route: 058
     Dates: start: 201209
  2. SEROQUEL [Concomitant]
     Indication: ANXIETY
  3. VYVANSE [Concomitant]
     Indication: ATTENTION DEFICIT/HYPERACTIVITY DISORDER
  4. PHENERGAN [Concomitant]
     Indication: IMPAIRED GASTRIC EMPTYING
  5. ZOFRAN [Concomitant]
     Indication: IMPAIRED GASTRIC EMPTYING
  6. KLONOPIN [Concomitant]
     Indication: ANXIETY
  7. UNKNOWN MEDICATION [Concomitant]
     Indication: COUGH

REACTIONS (6)
  - Fatigue [Not Recovered/Not Resolved]
  - Cough [Not Recovered/Not Resolved]
  - Oropharyngeal pain [Unknown]
  - Aphonia [Unknown]
  - Arthritis [Unknown]
  - Pain [Not Recovered/Not Resolved]
